FAERS Safety Report 21753120 (Version 1)
Quarter: 2022Q4

REPORT INFORMATION
  Report Type: Report from Study
  Country: MX (occurrence: MX)
  Receive Date: 20221220
  Receipt Date: 20221220
  Transmission Date: 20230113
  Serious: Yes (Death)
  Sender: FDA-Public Use
  Company Number: MX-002147023-NVSC2022MX293321

PATIENT
  Sex: Female
  Weight: 40 kg

DRUGS (1)
  1. EXFORGE [Suspect]
     Active Substance: AMLODIPINE BESYLATE\VALSARTAN
     Indication: Hypertension
     Dosage: 1 DOSAGE FORM, QD (STARTED 8 YEARS AGO APPROXIMATELY)
     Route: 048

REACTIONS (2)
  - Myocardial infarction [Fatal]
  - Blood pressure diastolic decreased [Unknown]
